FAERS Safety Report 4565963-2 (Version None)
Quarter: 2005Q1

REPORT INFORMATION
  Report Type: 
  Country: None (occurrence: None)
  Receive Date: 20050128
  Receipt Date: 20050112
  Transmission Date: 20050727
  Serious: Yes (Death)
  Sender: FDA-Public Use
  Company Number: B0364695A

PATIENT
  Age: 42 Year
  Sex: Female

DRUGS (5)
  1. CHLORAMBUCIL (GENERIC) (CHLORAMBUCIL) [Suspect]
     Indication: GLOMERULONEPHRITIS MEMBRANOUS
     Dosage: SEE DOSAGE TEXT
     Dates: start: 19970401, end: 20000601
  2. PREDNISOLONE [Concomitant]
  3. METHYLPREDNISOLONE [Concomitant]
  4. MYCOPHENOLATE MOFETIL [Concomitant]
  5. ASPIRIN [Concomitant]

REACTIONS (15)
  - ACUTE LEUKAEMIA [None]
  - BLOOD CREATININE INCREASED [None]
  - BONE MARROW DEPRESSION [None]
  - CELLULITIS [None]
  - CHROMOSOMAL DELETION [None]
  - INFECTION [None]
  - MYELODYSPLASTIC SYNDROME [None]
  - MYELOFIBROSIS [None]
  - OEDEMA PERIPHERAL [None]
  - PANCYTOPENIA [None]
  - PROTEINURIA [None]
  - PYREXIA [None]
  - REFRACTORY ANAEMIA WITH AN EXCESS OF BLASTS [None]
  - SEPTIC SHOCK [None]
  - THERAPY NON-RESPONDER [None]
